FAERS Safety Report 4539733-5 (Version None)
Quarter: 2004Q4

REPORT INFORMATION
  Report Type: 
  Country: None (occurrence: None)
  Receive Date: 20041223
  Receipt Date: 20041208
  Transmission Date: 20050328
  Serious: Yes (Hospitalization)
  Sender: FDA-Public Use
  Company Number: 9457

PATIENT
  Age: 18 Year
  Sex: Male

DRUGS (1)
  1. METHOTREXATE [Suspect]
     Indication: ACUTE LYMPHOCYTIC LEUKAEMIA
     Dosage: PO
     Route: 048
     Dates: start: 20020701

REACTIONS (4)
  - GINGIVAL BLEEDING [None]
  - MARKEDLY REDUCED DIETARY INTAKE [None]
  - STOMATITIS [None]
  - TOOTHACHE [None]
